FAERS Safety Report 10588279 (Version 1)
Quarter: 2014Q4

REPORT INFORMATION
  Report Type: Spontaneous
  Country: US (occurrence: US)
  Receive Date: 20141117
  Receipt Date: 20141117
  Transmission Date: 20150529
  Serious: Yes (Other)
  Sender: FDA-Public Use
  Company Number: US-BRISTOL-MYERS SQUIBB COMPANY-21577424

PATIENT
  Age: 70 Year
  Sex: Female
  Weight: 61.22 kg

DRUGS (1)
  1. ORENCIA [Suspect]
     Active Substance: ABATACEPT
     Route: 042
     Dates: end: 201402

REACTIONS (2)
  - Urinary tract infection [Unknown]
  - Arthropathy [Unknown]
